FAERS Safety Report 4304752-0 (Version None)
Quarter: 2004Q1

REPORT INFORMATION
  Report Type: 
  Country: None (occurrence: None)
  Receive Date: 20040226
  Receipt Date: 20031126
  Transmission Date: 20041129
  Serious: No
  Sender: FDA-Public Use
  Company Number: US-GLAXOSMITHKLINE-A0441533A

PATIENT
  Sex: Female

DRUGS (4)
  1. WELLBUTRIN [Suspect]
     Dosage: 300MG PER DAY
     Route: 048
     Dates: start: 20031111
  2. TOPROL-XL [Concomitant]
     Dosage: 100MG PER DAY
     Route: 065
  3. LOTREL [Concomitant]
  4. LEVOXYL [Concomitant]
     Dosage: 100MCG PER DAY
     Route: 065

REACTIONS (1)
  - HYPERTENSION [None]
